FAERS Safety Report 14582929 (Version 1)
Quarter: 2018Q1

REPORT INFORMATION
  Report Type: Spontaneous
  Country: None (occurrence: GB)
  Receive Date: 20180228
  Receipt Date: 20180228
  Transmission Date: 20180509
  Serious: Yes (Other)
  Sender: FDA-Public Use
  Company Number: GB-LABORATOIRE HRA PHARMA-2042727

PATIENT
  Age: 32 Year
  Sex: Female
  Weight: 55 kg

DRUGS (1)
  1. ELLA [Suspect]
     Active Substance: ULIPRISTAL ACETATE
     Indication: POST COITAL CONTRACEPTION
     Route: 048
     Dates: start: 20171127, end: 20171127

REACTIONS (29)
  - Dry throat [Recovered/Resolved]
  - Hot flush [Recovered/Resolved]
  - Dysmenorrhoea [Recovered/Resolved]
  - Mood swings [Recovered/Resolved]
  - Headache [Recovered/Resolved]
  - Dizziness [Recovered/Resolved]
  - Dry mouth [Recovered/Resolved]
  - Vulvovaginal dryness [Not Recovered/Not Resolved]
  - Abdominal discomfort [Recovered/Resolved]
  - Pruritus genital [Recovered/Resolved]
  - Breast tenderness [Recovered/Resolved]
  - Fatigue [Recovered/Resolved]
  - Loss of libido [Recovered/Resolved with Sequelae]
  - Vaginal discharge [Not Recovered/Not Resolved]
  - Flatulence [Recovered/Resolved]
  - Nausea [Recovered/Resolved]
  - Pelvic pain [Recovered/Resolved]
  - Vulvovaginal discomfort [Recovered/Resolved]
  - Emotional disorder [Recovered/Resolved]
  - Somnolence [Recovered/Resolved]
  - Genital pain [Recovered/Resolved]
  - Abdominal pain [Recovered/Resolved]
  - Abnormal sensation in eye [Recovered/Resolved]
  - Thirst [Recovered/Resolved]
  - Anxiety [Recovered/Resolved]
  - Dyspepsia [Recovered/Resolved]
  - Disturbance in attention [Recovered/Resolved]
  - Diarrhoea [Recovered/Resolved]
  - Back pain [Recovered/Resolved]

NARRATIVE: CASE EVENT DATE: 20171127
